FAERS Safety Report 5744608-X (Version None)
Quarter: 2008Q2

REPORT INFORMATION
  Report Type: 
  Country: None (occurrence: None)
  Receive Date: 20080520
  Receipt Date: 20080220
  Transmission Date: 20081010
  Serious: No
  Sender: FDA-Public Use
  Company Number: US-ABBOTT-08P-163-0439223-00

PATIENT
  Sex: Female

DRUGS (4)
  1. AZMACORT [Suspect]
     Indication: ASTHMA
     Route: 048
     Dates: start: 20050101
  2. FEXOFENADINE [Concomitant]
     Indication: ASTHMA
     Route: 048
     Dates: start: 20050101
  3. MONTELUKAST SODIUM [Concomitant]
     Indication: HYPERSENSITIVITY
     Route: 048
     Dates: start: 20050101
  4. IPRATROPIUM BROMIDE [Concomitant]
     Indication: ASTHMA
     Route: 048
     Dates: start: 20050101

REACTIONS (1)
  - UNDERDOSE [None]
